FAERS Safety Report 21767557 (Version 1)
Quarter: 2022Q4

REPORT INFORMATION
  Report Type: Spontaneous
  Country: US (occurrence: US)
  Receive Date: 20221222
  Receipt Date: 20221222
  Transmission Date: 20230113
  Serious: Yes (Other)
  Sender: FDA-Public Use
  Company Number: US-ORGANON-O2212USA001469

PATIENT
  Age: 30 Year
  Sex: Female
  Weight: 68.39 kg

DRUGS (2)
  1. NEXPLANON [Suspect]
     Active Substance: ETONOGESTREL
     Dosage: 1 IMPLANT, LEFT ARM,  68 MG EVERY 3 YEARS
     Route: 059
     Dates: start: 20221130, end: 20221208
  2. NEXPLANON [Suspect]
     Active Substance: ETONOGESTREL
     Dosage: 1 IMPLANT IN THE OTHER ARM
     Route: 059
     Dates: start: 20221212

REACTIONS (3)
  - Device expulsion [Recovered/Resolved]
  - Implant site reaction [Unknown]
  - Device placement issue [Not Recovered/Not Resolved]

NARRATIVE: CASE EVENT DATE: 20220101
